FAERS Safety Report 6724807-0 (Version None)
Quarter: 2010Q2

REPORT INFORMATION
  Report Type: 
  Country: None (occurrence: None)
  Receive Date: 20100513
  Receipt Date: 20100513
  Transmission Date: 20101027
  Serious: Yes (Disabling, Other)
  Sender: FDA-Public Use
  Company Number: None

PATIENT
  Age: 51 Year
  Sex: Female
  Weight: 72.5755 kg

DRUGS (1)
  1. LEVAQUIN [Suspect]
     Indication: SINUSITIS
     Dosage: 500MG DAILY BUCCAL
     Route: 002
     Dates: start: 20100418, end: 20100424

REACTIONS (7)
  - ARTHRALGIA [None]
  - BACK PAIN [None]
  - IMPAIRED WORK ABILITY [None]
  - JOINT STIFFNESS [None]
  - JOINT SWELLING [None]
  - MOVEMENT DISORDER [None]
  - MUSCULOSKELETAL PAIN [None]
